FAERS Safety Report 5856329-3 (Version None)
Quarter: 2008Q3

REPORT INFORMATION
  Report Type: 
  Country: None (occurrence: None)
  Receive Date: 20080825
  Receipt Date: 20080817
  Transmission Date: 20090109
  Serious: Yes (Other)
  Sender: FDA-Public Use
  Company Number: US-AMGEN-QUU302076

PATIENT
  Sex: Female

DRUGS (3)
  1. ENBREL [Suspect]
     Indication: RHEUMATOID ARTHRITIS
     Route: 058
     Dates: start: 20070307
  2. LEFLUNOMIDE [Concomitant]
     Route: 048
  3. LEVAQUIN [Concomitant]

REACTIONS (2)
  - CHOLELITHIASIS [None]
  - HALLUCINATION [None]
